FAERS Safety Report 18065829 (Version 1)
Quarter: 2020Q3

REPORT INFORMATION
  Report Type: Spontaneous
  Country: US (occurrence: US)
  Receive Date: 20200724
  Receipt Date: 20200724
  Transmission Date: 20201103
  Serious: No
  Sender: FDA-Public Use
  Company Number: None

PATIENT
  Age: 45 Year
  Sex: Female
  Weight: 72 kg

DRUGS (4)
  1. CANDESARTAN. [Concomitant]
     Active Substance: CANDESARTAN
  2. DAILY VITAMIN [Concomitant]
     Active Substance: VITAMINS
  3. MAGNESIUM [Concomitant]
     Active Substance: MAGNESIUM
  4. AIMOVIG [Suspect]
     Active Substance: ERENUMAB-AOOE
     Indication: MIGRAINE
     Dosage: ?          QUANTITY:1 INJECTION(S);OTHER FREQUENCY:MONTHLY;?
     Route: 058
     Dates: start: 20180611, end: 20200511

REACTIONS (8)
  - Alopecia [None]
  - Arthralgia [None]
  - Temperature intolerance [None]
  - Pruritus [None]
  - Raynaud^s phenomenon [None]
  - Dyspepsia [None]
  - Heat exhaustion [None]
  - Constipation [None]

NARRATIVE: CASE EVENT DATE: 20200724
